FAERS Safety Report 12559605 (Version 1)
Quarter: 2016Q3

REPORT INFORMATION
  Report Type: Report from Study
  Country: VN (occurrence: VN)
  Receive Date: 20160715
  Receipt Date: 20160715
  Transmission Date: 20161109
  Serious: Yes (Death, Other)
  Sender: FDA-Public Use
  Company Number: VN-009507513-1607VNM006523

PATIENT
  Age: 46 Year
  Sex: Male

DRUGS (1)
  1. COZAAR [Suspect]
     Active Substance: LOSARTAN POTASSIUM
     Dosage: ONE TABLET ONCE A DAY
     Route: 048
     Dates: start: 20141119, end: 20160201

REACTIONS (1)
  - Death [Fatal]

NARRATIVE: CASE EVENT DATE: 201602
